FAERS Safety Report 11314232 (Version 1)
Quarter: 2015Q3

REPORT INFORMATION
  Report Type: Spontaneous
  Country: US (occurrence: US)
  Receive Date: 20150727
  Receipt Date: 20150727
  Transmission Date: 20151125
  Serious: No
  Sender: FDA-Public Use
  Company Number: US-GALDERMA-US14002940

PATIENT
  Age: 20 Year
  Sex: Female

DRUGS (3)
  1. DIFFERIN [Suspect]
     Active Substance: ADAPALENE
     Indication: ACNE
     Dates: start: 20140601
  2. UNKNOWN SUNSCREEN [Concomitant]
     Indication: PROPHYLAXIS AGAINST SOLAR RADIATION
  3. UNKNOWN CLEANSER [Concomitant]
     Indication: THERAPEUTIC SKIN CARE TOPICAL

REACTIONS (1)
  - Drug ineffective [Recovered/Resolved]

NARRATIVE: CASE EVENT DATE: 201406
